FAERS Safety Report 15130149 (Version 6)
Quarter: 2018Q3

REPORT INFORMATION
  Report Type: Spontaneous
  Country: JP (occurrence: JP)
  Receive Date: 20180711
  Receipt Date: 20180821
  Transmission Date: 20181010
  Serious: Yes (Death, Life-Threatening, Hospitalization, Disabling, Other)
  Sender: FDA-Public Use
  Company Number: JP-SA-2018SA184639

PATIENT
  Age: 37 Year
  Sex: Male
  Weight: 59 kg

DRUGS (3)
  1. ATARAX?P [HYDROXYZINE EMBONATE] [Concomitant]
     Indication: ALLERGY PROPHYLAXIS
     Dosage: 1 DF, QOW
     Route: 048
  2. FABRAZYME [Suspect]
     Active Substance: AGALSIDASE BETA
     Indication: FABRY^S DISEASE
     Dosage: UNK UNK, QOW
     Route: 041
     Dates: start: 20180110, end: 20180704
  3. FABRAZYME [Suspect]
     Active Substance: AGALSIDASE BETA
     Indication: FABRY^S DISEASE
     Dosage: UNK UNK, QOW
     Route: 042
     Dates: start: 20180110, end: 20180704

REACTIONS (2)
  - Ventricular fibrillation [Fatal]
  - Cardio-respiratory arrest [Fatal]

NARRATIVE: CASE EVENT DATE: 20180704
